FAERS Safety Report 14277059 (Version 1)
Quarter: 2017Q4

REPORT INFORMATION
  Report Type: Spontaneous
  Country: JP (occurrence: JP)
  Receive Date: 20171211
  Receipt Date: 20171211
  Transmission Date: 20180321
  Serious: Yes (Other)
  Sender: FDA-Public Use
  Company Number: JP-ALLERGAN-1769412US

PATIENT

DRUGS (1)
  1. BOTULINUM TOXIN TYPE A - BP [Suspect]
     Active Substance: BOTULINUM TOXIN TYPE A
     Indication: BLEPHAROSPASM
     Dosage: UNK, SINGLE
     Route: 030

REACTIONS (1)
  - Colon cancer [Unknown]
